FAERS Safety Report 12356988 (Version 1)
Quarter: 2016Q2

REPORT INFORMATION
  Report Type: Spontaneous
  Country: US (occurrence: US)
  Receive Date: 20160511
  Receipt Date: 20160511
  Transmission Date: 20160815
  Serious: Yes (Hospitalization, Other)
  Sender: FDA-Public Use
  Company Number: PHHY2016US062607

PATIENT

DRUGS (1)
  1. METHOTREXATE [Suspect]
     Active Substance: METHOTREXATE
     Indication: ECTOPIC PREGNANCY
     Dosage: 80 MG, UNK
     Route: 030

REACTIONS (5)
  - Chest pain [Unknown]
  - Ectopic pregnancy [Unknown]
  - Dyspnoea [Unknown]
  - Human chorionic gonadotropin increased [Unknown]
  - Maternal exposure during pregnancy [Unknown]
